FAERS Safety Report 4477390-7 (Version None)
Quarter: 2004Q4

REPORT INFORMATION
  Report Type: 
  Country: None (occurrence: None)
  Receive Date: 20041018
  Receipt Date: 20040927
  Transmission Date: 20050328
  Serious: Yes (Hospitalization)
  Sender: FDA-Public Use
  Company Number: JP-BRISTOL-MYERS SQUIBB COMPANY-12715215

PATIENT
  Age: 40 Year
  Sex: Male

DRUGS (2)
  1. BRIPLATIN [Suspect]
     Indication: TESTIS CANCER
     Route: 042
  2. VEPESID [Suspect]
     Route: 042

REACTIONS (1)
  - PULMONARY EMBOLISM [None]
